FAERS Safety Report 24844340 (Version 1)
Quarter: 2025Q1

REPORT INFORMATION
  Report Type: Spontaneous
  Country: US (occurrence: US)
  Receive Date: 20250115
  Receipt Date: 20250115
  Transmission Date: 20250409
  Serious: Yes (Life-Threatening, Other)
  Sender: AUROBINDO
  Company Number: US-MLMSERVICE-20241226-PI326298-00215-1

PATIENT
  Sex: Male

DRUGS (2)
  1. MESALAMINE [Suspect]
     Active Substance: MESALAMINE
     Indication: Colitis ulcerative
     Route: 065
  2. MESALAMINE [Suspect]
     Active Substance: MESALAMINE
     Indication: Condition aggravated

REACTIONS (3)
  - Myocarditis [Recovering/Resolving]
  - Heart failure with reduced ejection fraction [Recovering/Resolving]
  - Acute myocardial infarction [Recovering/Resolving]
